FAERS Safety Report 6318214-2 (Version None)
Quarter: 2009Q3

REPORT INFORMATION
  Report Type: 
  Country: None (occurrence: None)
  Receive Date: 20090821
  Receipt Date: 20090818
  Transmission Date: 20100115
  Serious: Yes (Hospitalization)
  Sender: FDA-Public Use
  Company Number: B0589609A

PATIENT
  Sex: Female

DRUGS (6)
  1. CLAVAMOX [Suspect]
     Indication: URINARY TRACT INFECTION
     Route: 048
     Dates: start: 20090617
  2. TEMESTA [Concomitant]
     Route: 048
  3. ZOLOFT [Concomitant]
     Dosage: 50MG PER DAY
     Route: 048
  4. NEURONTIN [Concomitant]
     Dosage: 200MG PER DAY
     Route: 048
  5. REMERON [Concomitant]
     Dosage: 15MG PER DAY
     Route: 048
  6. FENTANYL [Concomitant]
     Dosage: 75UG PER DAY
     Route: 062

REACTIONS (3)
  - AGITATION [None]
  - CONVULSION [None]
  - INSOMNIA [None]
